FAERS Safety Report 23529978 (Version 1)
Quarter: 2024Q1

REPORT INFORMATION
  Report Type: Spontaneous
  Country: US (occurrence: None)
  Receive Date: 20240216
  Receipt Date: 20240216
  Transmission Date: 20240410
  Serious: Yes (Death, Hospitalization)
  Sender: FDA-Public Use
  Company Number: 2024A037365

PATIENT
  Sex: Female
  Weight: 59 kg

DRUGS (1)
  1. TRUQAP [Suspect]
     Active Substance: CAPIVASERTIB
     Indication: Breast cancer female
     Route: 048
     Dates: start: 20240115, end: 20240118

REACTIONS (5)
  - Decreased appetite [Fatal]
  - Disorientation [Fatal]
  - Organ failure [Fatal]
  - Blood glucose increased [Fatal]
  - Hyponatraemia [Fatal]

NARRATIVE: CASE EVENT DATE: 20240118
